FAERS Safety Report 25417914 (Version 3)
Quarter: 2025Q2

REPORT INFORMATION
  Report Type: Spontaneous
  Country: US (occurrence: US)
  Receive Date: 20250610
  Receipt Date: 20250620
  Transmission Date: 20250717
  Serious: Yes (Life-Threatening, Hospitalization, Other)
  Sender: PFIZER
  Company Number: US-PFIZER INC-PV202500068809

PATIENT
  Age: 34 Year
  Sex: Female

DRUGS (5)
  1. PROPOFOL [Interacting]
     Active Substance: PROPOFOL
     Indication: Induction and maintenance of anaesthesia
     Route: 042
  2. PROPOFOL [Interacting]
     Active Substance: PROPOFOL
     Route: 042
  3. PROPOFOL [Interacting]
     Active Substance: PROPOFOL
     Route: 042
  4. FLUOXETINE [Interacting]
     Active Substance: FLUOXETINE HYDROCHLORIDE
     Indication: Anxiety
     Dosage: 40 MG, DAILY
  5. BUPROPION [Interacting]
     Active Substance: BUPROPION
     Indication: Anxiety
     Dosage: 150 MG, DAILY

REACTIONS (2)
  - Drug interaction [Recovered/Resolved]
  - Serotonin syndrome [Recovered/Resolved]
